FAERS Safety Report 4715959-2 (Version None)
Quarter: 2005Q3

REPORT INFORMATION
  Report Type: 
  Country: None (occurrence: None)
  Receive Date: 20050718
  Receipt Date: 20050711
  Transmission Date: 20060218
  Serious: Yes (Hospitalization)
  Sender: FDA-Public Use
  Company Number: US-BOEHRINGER INGELHEIM PHARMACEUTICALS, INC.-2005-BP-11676BP

PATIENT
  Sex: Male
  Weight: 79.83 kg

DRUGS (1)
  1. TIPRANAVIR / RITONAVIR CAPSULES [Suspect]
     Indication: HIV INFECTION

REACTIONS (4)
  - CHEST DISCOMFORT [None]
  - COUGH [None]
  - PNEUMONIA [None]
  - PYREXIA [None]
